FAERS Safety Report 4489568-7 (Version None)
Quarter: 2004Q4

REPORT INFORMATION
  Report Type: 
  Country: None (occurrence: None)
  Receive Date: 20041026
  Receipt Date: 20041011
  Transmission Date: 20050328
  Serious: Yes (Hospitalization)
  Sender: FDA-Public Use
  Company Number: A02200403026

PATIENT
  Age: 36 Year
  Sex: Male

DRUGS (6)
  1. STILNOX (ZOLPIDEM) TABLET 10 MG [Suspect]
     Indication: SLEEP DISORDER
     Route: 048
     Dates: start: 20040703, end: 20040707
  2. AUGMENTIN '250' [Suspect]
     Dosage: 1 G TID
     Route: 042
     Dates: start: 20040630, end: 20040708
  3. OFLOXACINE BIOGARAN (OFLOXACIN) TABLET 200 MG [Suspect]
     Dosage: 200 MG BID
     Route: 048
     Dates: start: 20040709, end: 20040711
  4. PERFALGAN (PARACETAMOL) SOLUTON 10 MG/ML [Suspect]
     Route: 042
     Dates: start: 20040702, end: 20040704
  5. OFLOCET (OFLOXACIN) SOLUTION 200 MG [Suspect]
     Dosage: 200 MG BID
     Route: 042
     Dates: start: 20040630, end: 20040708
  6. TOPALGIC (TRAMADOL HYDROCHLORIDE) CAPSULE - 50 MG [Suspect]
     Route: 048
     Dates: start: 20040630, end: 20040704

REACTIONS (2)
  - EOSINOPHIL COUNT ABNORMAL [None]
  - STEVENS-JOHNSON SYNDROME [None]
